FAERS Safety Report 6054077-0 (Version None)
Quarter: 2009Q1

REPORT INFORMATION
  Report Type: 
  Country: None (occurrence: None)
  Receive Date: 20090127
  Receipt Date: 20090113
  Transmission Date: 20090719
  Serious: Yes (Hospitalization)
  Sender: FDA-Public Use
  Company Number: JP-ROCHE-608903

PATIENT
  Sex: Female
  Weight: 16 kg

DRUGS (2)
  1. TAMIFLU [Suspect]
     Indication: INFLUENZA
     Dosage: FORM: DRY SYRUP
     Route: 048
     Dates: start: 20081223, end: 20081224
  2. ANHIBA [Concomitant]
     Dosage: NOTE: TAKEN AS NEEDED
     Route: 054
     Dates: start: 20081223, end: 20081223

REACTIONS (1)
  - ABNORMAL BEHAVIOUR [None]
